FAERS Safety Report 7675557-8 (Version None)
Quarter: 2011Q3

REPORT INFORMATION
  Report Type: 
  Country: None (occurrence: None)
  Receive Date: 20110810
  Receipt Date: 20110805
  Transmission Date: 20111222
  Serious: Yes (Life-Threatening, Other)
  Sender: FDA-Public Use
  Company Number: US-ROXANE LABORATORIES, INC.-2011-RO-01115RO

PATIENT
  Age: 2 Year
  Sex: Male

DRUGS (1)
  1. BUPRENORPHINE HCL [Suspect]
     Dosage: 2 MG
     Route: 048

REACTIONS (4)
  - ASPIRATION [None]
  - TOXICITY TO VARIOUS AGENTS [None]
  - PYREXIA [None]
  - LEUKOENCEPHALOPATHY [None]
